FAERS Safety Report 6519210-2 (Version None)
Quarter: 2009Q4

REPORT INFORMATION
  Report Type: 
  Country: None (occurrence: None)
  Receive Date: 20091228
  Receipt Date: 20091215
  Transmission Date: 20100525
  Serious: Yes (Life-Threatening, Hospitalization)
  Sender: FDA-Public Use
  Company Number: PHHY2009FR55500

PATIENT
  Sex: Female

DRUGS (3)
  1. VALSARTAN AND HYDROCHLOROTHIAZIDE [Suspect]
     Indication: HYPERTENSION
     Dosage: 40/12.5 MG, QD
     Dates: end: 20090715
  2. KARDEGIC [Suspect]
     Dosage: 75 MG, QD
     Route: 048
  3. LODOZ [Suspect]
     Dosage: 5/6.25 MG
     Route: 048
     Dates: start: 20090715, end: 20090717

REACTIONS (8)
  - ANGINA PECTORIS [None]
  - ATRIOVENTRICULAR BLOCK COMPLETE [None]
  - DYSPNOEA EXERTIONAL [None]
  - ELECTROCARDIOGRAM P WAVE ABNORMAL [None]
  - ELECTROCARDIOGRAM QRS COMPLEX SHORTENED [None]
  - HEART RATE DECREASED [None]
  - OEDEMA PERIPHERAL [None]
  - RALES [None]
